FAERS Safety Report 9388974 (Version 2)
Quarter: 2014Q1

REPORT INFORMATION
  Report Type: Spontaneous
  Country: GB (occurrence: GB)
  Receive Date: 20130708
  Receipt Date: 20140131
  Transmission Date: 20141002
  Serious: Yes (Other)
  Sender: FDA-Public Use
  Company Number: GB-ACTAVIS-2013-11710

PATIENT
  Age: 32 Year
  Sex: Female

DRUGS (2)
  1. FINASTERIDE (UNKNOWN) [Suspect]
     Indication: POLYCYSTIC OVARIES
     Dosage: UNK
     Route: 065
  2. FINASTERIDE (UNKNOWN) [Suspect]
     Indication: OFF LABEL USE

REACTIONS (2)
  - Breast cancer [Unknown]
  - Off label use [Unknown]
